FAERS Safety Report 23593778 (Version 1)
Quarter: 2024Q1

REPORT INFORMATION
  Report Type: Report from Study
  Country: JP (occurrence: JP)
  Receive Date: 20240304
  Receipt Date: 20240304
  Transmission Date: 20240409
  Serious: Yes (Death)
  Sender: FDA-Public Use
  Company Number: JP-JNJFOC-20240306830

PATIENT
  Age: 66 Year
  Sex: Male

DRUGS (4)
  1. ZYTIGA [Suspect]
     Active Substance: ABIRATERONE ACETATE
     Indication: Prostate cancer metastatic
     Route: 048
     Dates: start: 20200205
  2. DEGARELIX [Concomitant]
     Active Substance: DEGARELIX
     Indication: Prostate cancer metastatic
     Dosage: DOSE UNKNOWN
     Route: 065
     Dates: start: 20190912
  3. DENOSUMAB [Concomitant]
     Active Substance: DENOSUMAB
     Indication: Product used for unknown indication
     Dosage: DOSE UNKNOWN
     Route: 065
  4. PREDNISOLONE [Concomitant]
     Active Substance: PREDNISOLONE
     Indication: Prostate cancer metastatic
     Route: 065
     Dates: start: 20200205

REACTIONS (1)
  - Death [Fatal]

NARRATIVE: CASE EVENT DATE: 20231227
